FAERS Safety Report 7760289-8 (Version None)
Quarter: 2011Q3

REPORT INFORMATION
  Report Type: 
  Country: None (occurrence: None)
  Receive Date: 20110919
  Receipt Date: 20110914
  Transmission Date: 20111222
  Serious: Yes (Other)
  Sender: FDA-Public Use
  Company Number: GB-PFIZER INC-2011217066

PATIENT
  Sex: Male

DRUGS (1)
  1. LIPITOR [Suspect]
     Dosage: 80 MG, 1X/DAY (ONE TABLET TO BE TAKEN AT NIGHT)

REACTIONS (3)
  - DYSPNOEA [None]
  - CHOKING [None]
  - COUGH [None]
